FAERS Safety Report 5673170-5 (Version None)
Quarter: 2008Q2

REPORT INFORMATION
  Report Type: 
  Country: None (occurrence: None)
  Receive Date: 20080219
  Receipt Date: 20071226
  Transmission Date: 20081010
  Serious: No
  Sender: FDA-Public Use
  Company Number: TPA2007A02554

PATIENT
  Age: 78 Year
  Sex: Male
  Weight: 84.369 kg

DRUGS (9)
  1. ROZEREM [Suspect]
     Indication: INSOMNIA
     Dosage: 8 MG, HS, PER ORAL
     Route: 048
     Dates: start: 20071101
  2. HYDROCHLOROTHIAZIDE [Concomitant]
  3. TRUSOPT (DORZOLAMIDE HYDROCHLORIDE) (EYE DROPS) [Concomitant]
  4. XALATAN (LATANOPROST) (EYE DROPS) [Concomitant]
  5. MECLIZINE [Concomitant]
  6. ZESTRIL [Concomitant]
  7. ZOCOR [Concomitant]
  8. ASPIRIN [Concomitant]
  9. FISH OIL (FISH OIL) [Concomitant]

REACTIONS (1)
  - BLOOD GLUCOSE INCREASED [None]
